FAERS Safety Report 24765116 (Version 1)
Quarter: 2024Q4

REPORT INFORMATION
  Report Type: Spontaneous
  Country: US (occurrence: None)
  Receive Date: 20241219
  Receipt Date: 20241219
  Transmission Date: 20250115
  Serious: Yes (Hospitalization)
  Sender: Public
  Company Number: None

PATIENT
  Age: 70 Year
  Sex: Male
  Weight: 89 kg

DRUGS (1)
  1. EMPAGLIFLOZIN [Suspect]
     Active Substance: EMPAGLIFLOZIN
     Indication: Diabetes mellitus
     Dosage: FREQUENCY : DAILY;?
     Route: 048
     Dates: start: 20230303, end: 20240816

REACTIONS (6)
  - Incontinence [None]
  - Blood pressure decreased [None]
  - Cystitis [None]
  - Klebsiella infection [None]
  - Infection [None]
  - Bacteraemia [None]

NARRATIVE: CASE EVENT DATE: 20240813
